FAERS Safety Report 18037305 (Version 4)
Quarter: 2021Q2

REPORT INFORMATION
  Report Type: Spontaneous
  Country: JP (occurrence: JP)
  Receive Date: 20200717
  Receipt Date: 20210621
  Transmission Date: 20210717
  Serious: Yes (Hospitalization, Other)
  Sender: FDA-Public Use
  Company Number: JP-AMGEN-JPN-20200101566

PATIENT
  Age: 71 Year
  Sex: Male
  Weight: 51 kg

DRUGS (14)
  1. LECTISOL [Concomitant]
     Active Substance: DAPSONE
     Indication: PEMPHIGOID
     Dosage: 25 MILLIGRAM, BID
     Dates: start: 202001
  2. ALENDRONATE [Concomitant]
     Active Substance: ALENDRONATE SODIUM
     Dosage: 35 MILLIGRAM, QWK
     Dates: start: 20200222
  3. OTEZLA [Suspect]
     Active Substance: APREMILAST
     Indication: PSORIATIC ARTHROPATHY
     Dosage: 30 MILLIGRAM, BID
     Route: 048
     Dates: start: 20191104
  4. PREDONINE [Suspect]
     Active Substance: PREDNISOLONE
     Dosage: 50 MILLIGRAM
     Route: 048
  5. LANSOPRAZOLE. [Concomitant]
     Active Substance: LANSOPRAZOLE
     Dosage: 15 MILLIGRAM, QD
     Dates: start: 20200222
  6. NORVASC [Concomitant]
     Active Substance: AMLODIPINE BESYLATE
     Dosage: UNK
     Route: 048
  7. AMLODIPINE [Concomitant]
     Active Substance: AMLODIPINE BESYLATE
     Dosage: 5 MILLIGRAM, QD
     Dates: start: 20200222
  8. OTEZLA [Suspect]
     Active Substance: APREMILAST
     Indication: PSORIASIS
     Dosage: UNK
     Route: 048
  9. PREDONINE [Suspect]
     Active Substance: PREDNISOLONE
     Indication: PRODUCT USED FOR UNKNOWN INDICATION
     Dosage: 5 MILLIGRAM, QD(ONCE DAILY AFTER BREAKFAST)
     Route: 065
     Dates: start: 20200222
  10. BESOFTEN [Concomitant]
     Active Substance: PENTOSAN POLYSULFATE SODIUM
     Dosage: UNK UNK, QD
     Dates: start: 20200222
  11. DAIPHEN [Concomitant]
     Active Substance: SULFAMETHOXAZOLE\TRIMETHOPRIM
     Dosage: 1 DOSAGE FORM, QD(ONCE DAILY AFTER BREAKFAST)
     Dates: start: 20200222
  12. FULMETA [Concomitant]
     Active Substance: MOMETASONE
     Dosage: UNK UNK, BID
     Dates: start: 20200222
  13. ECARD HD [Concomitant]
     Active Substance: CANDESARTAN CILEXETIL\HYDROCHLOROTHIAZIDE
     Dosage: UNK
     Route: 048
  14. METFORMIN HYDROCHLORIDE. [Concomitant]
     Active Substance: METFORMIN HYDROCHLORIDE
     Dosage: 500 MILLIGRAM, BID
     Route: 048
     Dates: start: 20200222

REACTIONS (4)
  - Pemphigoid [Recovered/Resolved]
  - Weight decreased [Unknown]
  - Diabetes mellitus [Recovered/Resolved]
  - Inflammation [Unknown]

NARRATIVE: CASE EVENT DATE: 2020
